FAERS Safety Report 6210323-1 (Version None)
Quarter: 2009Q2

REPORT INFORMATION
  Report Type: 
  Country: None (occurrence: None)
  Receive Date: 20090529
  Receipt Date: 20090529
  Transmission Date: 20091009
  Serious: Yes (Other)
  Sender: FDA-Public Use
  Company Number: None

PATIENT
  Age: 51 Year
  Sex: Female
  Weight: 86.1834 kg

DRUGS (2)
  1. EFFEXOR XR [Suspect]
     Indication: ANXIETY
     Dosage: 150 MG CAPSULE DAILY PO
     Route: 048
     Dates: start: 20050501, end: 20090501
  2. EFFEXOR XR [Suspect]
     Indication: MENOPAUSE
     Dosage: 150 MG CAPSULE DAILY PO
     Route: 048
     Dates: start: 20050501, end: 20090501

REACTIONS (8)
  - ASTHENIA [None]
  - AURA [None]
  - BLOOD PROLACTIN INCREASED [None]
  - CONVULSION [None]
  - LACTATION DISORDER [None]
  - MALAISE [None]
  - PITUITARY TUMOUR [None]
  - UNEVALUABLE EVENT [None]
